FAERS Safety Report 22857650 (Version 8)
Quarter: 2024Q3

REPORT INFORMATION
  Report Type: Spontaneous
  Country: US (occurrence: US)
  Receive Date: 20230823
  Receipt Date: 20240911
  Transmission Date: 20241016
  Serious: No
  Sender: PFIZER
  Company Number: US-PFIZER INC-PV202200120682

PATIENT
  Age: 74 Year
  Sex: Female
  Weight: 76.7 kg

DRUGS (14)
  1. IBRANCE [Suspect]
     Active Substance: PALBOCICLIB
     Indication: Breast cancer female
     Dosage: ONCE DAILY, 14D ON, 7D OFF
     Dates: start: 20210908
  2. IBRANCE [Suspect]
     Active Substance: PALBOCICLIB
     Indication: Invasive ductal breast carcinoma
     Dosage: DAILY FOR 14 DAYS AND THEN STOP TAKING FOR 7 DAYS AND THEN REPEAT
     Route: 048
     Dates: start: 20221018
  3. IBRANCE [Suspect]
     Active Substance: PALBOCICLIB
     Indication: Breast cancer metastatic
  4. PRINIVIL [Concomitant]
     Active Substance: LISINOPRIL
     Indication: Blood pressure abnormal
     Dosage: 20 MG, ONCE A DAY AT NIGHT
     Route: 048
  5. ZESTRIL [Concomitant]
     Active Substance: LISINOPRIL
     Dosage: 20 MG, DAILY
     Route: 048
  6. CALCIUM [Concomitant]
     Active Substance: CALCIUM
     Dosage: 1000 MG, ONCE A DAY
     Route: 048
  7. MAGNESIUM [Concomitant]
     Active Substance: MAGNESIUM
     Dosage: 50 UG, ONCE A DAY
     Route: 048
  8. ZINC [Concomitant]
     Active Substance: ZINC
     Dosage: 15 MG, ONCE A DAY
  9. VITAMIN D3 [Concomitant]
     Active Substance: CHOLECALCIFEROL
     Dosage: 75 UG, 2X/DAY
     Route: 048
  10. ATROPINE OPHTHALMIC [Concomitant]
     Indication: Eye irritation
     Dosage: INSTILL 1 DROP INTO THE RIGHT EYE 4 TIMES DAILY AS NEEDED WHEN EYE FEELS IRRITATED
     Route: 047
  11. XALATAN [Concomitant]
     Active Substance: LATANOPROST
     Dosage: INSTILL 1 DROP INTO LEFT EYE ONCE DAILY AT BEDTIME
     Route: 047
  12. FEMARA [Concomitant]
     Active Substance: LETROZOLE
     Dosage: 2.5 MG, 1X/DAY
     Route: 048
  13. MINERALS\VITAMINS [Concomitant]
     Active Substance: MINERALS\VITAMINS
     Dosage: 1 EACH BY MOUTH DAILY
     Route: 048
  14. PRED FORTE [Concomitant]
     Active Substance: PREDNISOLONE ACETATE
     Indication: Eye irritation
     Dosage: INSTILL 1 DROP INTO RIGHT EYE 4 TIMES DAILY AS NEEDED WHEN EYE FEELS IRRITATED
     Route: 047

REACTIONS (7)
  - Osteoporosis [Not Recovered/Not Resolved]
  - Nasopharyngitis [Recovered/Resolved]
  - Ear infection [Recovered/Resolved]
  - Cough [Recovered/Resolved]
  - Off label use [Recovered/Resolved]
  - Product use issue [Recovered/Resolved]
  - Inappropriate schedule of product administration [Recovered/Resolved]

NARRATIVE: CASE EVENT DATE: 20230701
